FAERS Safety Report 21956517 (Version 2)
Quarter: 2023Q1

REPORT INFORMATION
  Report Type: Other
  Country: CZ (occurrence: CZ)
  Receive Date: 20230206
  Receipt Date: 20230317
  Transmission Date: 20230418
  Serious: Yes (Hospitalization, Other)
  Sender: FDA-Public Use
  Company Number: CZ-002147023-NVSC2023CZ013841

PATIENT
  Age: 57 Year
  Sex: Male

DRUGS (12)
  1. OBINUTUZUMAB [Suspect]
     Active Substance: OBINUTUZUMAB
     Indication: Follicular lymphoma
     Dosage: UNK
     Route: 065
     Dates: end: 202012
  2. RITUXIMAB [Suspect]
     Active Substance: RITUXIMAB
     Indication: Follicular lymphoma
     Dosage: UNK
     Route: 065
     Dates: start: 202006
  3. RITUXIMAB [Suspect]
     Active Substance: RITUXIMAB
     Dosage: 3 CYCLES
     Route: 065
     Dates: start: 2018
  4. CISPLATIN [Suspect]
     Active Substance: CISPLATIN
     Indication: Follicular lymphoma
     Dosage: UNK
     Route: 065
     Dates: start: 202006
  5. CISPLATIN [Suspect]
     Active Substance: CISPLATIN
     Dosage: 3 CYCLES
     Route: 065
     Dates: start: 2018
  6. BENDAMUSTINE [Suspect]
     Active Substance: BENDAMUSTINE
     Indication: Follicular lymphoma
     Dosage: UNK
     Route: 065
  7. METHYLPREDNISOLONE [Suspect]
     Active Substance: METHYLPREDNISOLONE
     Indication: Follicular lymphoma
     Dosage: 3 CYCLES
     Route: 065
     Dates: start: 2018
  8. ETOPOSIDE [Suspect]
     Active Substance: ETOPOSIDE
     Indication: Follicular lymphoma
     Dosage: 3 CYCLES
     Route: 065
     Dates: start: 2018
  9. CYTARABINE [Suspect]
     Active Substance: CYTARABINE
     Indication: Follicular lymphoma
     Dosage: UNK
     Route: 065
     Dates: start: 202006
  10. CYTARABINE [Suspect]
     Active Substance: CYTARABINE
     Dosage: 3 CYCLES
     Route: 065
     Dates: start: 2018
  11. METHYLPREDNISOLONE [Concomitant]
     Active Substance: METHYLPREDNISOLONE
     Indication: Follicular lymphoma stage II
     Dosage: UNK
     Dates: start: 202006
  12. ETOPOSIDE [Concomitant]
     Active Substance: ETOPOSIDE
     Indication: Follicular lymphoma stage II
     Dosage: UNK
     Dates: start: 202006

REACTIONS (7)
  - Follicular lymphoma [Unknown]
  - Malignant neoplasm progression [Unknown]
  - Recurrent cancer [Unknown]
  - COVID-19 [Unknown]
  - Toxicity to various agents [Unknown]
  - Therapy partial responder [Unknown]
  - Treatment failure [Unknown]

NARRATIVE: CASE EVENT DATE: 20191201
